FAERS Safety Report 9331416 (Version 1)
Quarter: 2013Q2

REPORT INFORMATION
  Report Type: Spontaneous
  Country: US (occurrence: US)
  Receive Date: 20130605
  Receipt Date: 20130605
  Transmission Date: 20140414
  Serious: Yes (Hospitalization)
  Sender: FDA-Public Use
  Company Number: US-ABBOTT-13P-163-1093398-00

PATIENT
  Sex: Male
  Weight: 99.88 kg

DRUGS (3)
  1. HUMIRA [Suspect]
     Indication: RHEUMATOID ARTHRITIS
     Dates: start: 2003, end: 201304
  2. NEXIUM [Concomitant]
     Indication: GASTRIC DISORDER
  3. FINASTERIDE [Concomitant]
     Indication: PROSTATIC SPECIFIC ANTIGEN INCREASED

REACTIONS (5)
  - Tendon rupture [Unknown]
  - Local swelling [Unknown]
  - Staphylococcal infection [Recovered/Resolved]
  - Cutaneous tuberculosis [Unknown]
  - Pneumonia [Recovered/Resolved]
